FAERS Safety Report 12832992 (Version 2)
Quarter: 2016Q4

REPORT INFORMATION
  Report Type: Report from Study
  Country: AT (occurrence: AT)
  Receive Date: 20161010
  Receipt Date: 20161111
  Transmission Date: 20170207
  Serious: Yes (Hospitalization)
  Sender: FDA-Public Use
  Company Number: AT-AMGEN-AUTNI2016137494

PATIENT
  Age: 70 Year
  Sex: Female
  Weight: 66 kg

DRUGS (6)
  1. BEVACIZUMAB [Concomitant]
     Active Substance: BEVACIZUMAB
     Dosage: 2.5 MG/KG, 3 TIMES/WK
     Route: 042
     Dates: start: 20160301
  2. DEXAMETHASONE. [Concomitant]
     Active Substance: DEXAMETHASONE
     Dosage: 12 MG, UNK
     Dates: start: 20150908, end: 20160119
  3. PACLITAXEL. [Concomitant]
     Active Substance: PACLITAXEL
     Dosage: 160 MG, UNK
     Dates: start: 20150908, end: 20160119
  4. BEVACIZUMAB [Concomitant]
     Active Substance: BEVACIZUMAB
     Dosage: 15 MG/KG, UNK
     Dates: start: 20150908, end: 20160119
  5. EXEMESTAN [Concomitant]
     Active Substance: EXEMESTANE
     Dosage: UNK
     Dates: start: 20160811, end: 201609
  6. DENOSUMAB [Suspect]
     Active Substance: DENOSUMAB
     Indication: PROPHYLAXIS
     Dosage: 120 MG, QMO
     Route: 058
     Dates: start: 20150915, end: 20160119

REACTIONS (1)
  - Osteonecrosis of jaw [Recovered/Resolved]

NARRATIVE: CASE EVENT DATE: 20160802
